FAERS Safety Report 10233717 (Version 3)
Quarter: 2014Q2

REPORT INFORMATION
  Report Type: Spontaneous
  Country: US (occurrence: US)
  Receive Date: 20140612
  Receipt Date: 20140624
  Transmission Date: 20141212
  Serious: Yes (Hospitalization, Other)
  Sender: FDA-Public Use
  Company Number: US-ROCHE-1331671

PATIENT
  Age: 58 Year
  Sex: Male

DRUGS (8)
  1. PEGASYS [Suspect]
     Indication: HEPATITIS C
     Route: 058
     Dates: start: 20131125, end: 20140114
  2. PEGASYS [Suspect]
     Route: 058
     Dates: start: 20140102
  3. PEGASYS [Suspect]
     Route: 058
     Dates: start: 20131127
  4. RIBASPHERE [Suspect]
     Indication: HEPATITIS C
     Route: 048
     Dates: start: 20131125, end: 20140114
  5. RIBASPHERE [Suspect]
     Route: 048
     Dates: start: 20140102
  6. INCIVEK [Suspect]
     Indication: HEPATITIS C
     Route: 048
     Dates: start: 20131203
  7. INCIVEK [Suspect]
     Route: 048
     Dates: start: 20140102, end: 201402
  8. BENADRYL (UNITED STATES) [Concomitant]
     Indication: EYE PRURITUS

REACTIONS (28)
  - Irritability [Not Recovered/Not Resolved]
  - Diarrhoea [Unknown]
  - Skin ulcer [Unknown]
  - Eye pruritus [Recovering/Resolving]
  - Dysuria [Not Recovered/Not Resolved]
  - Haematochezia [Not Recovered/Not Resolved]
  - Epistaxis [Not Recovered/Not Resolved]
  - Gingival bleeding [Not Recovered/Not Resolved]
  - Injection site rash [Not Recovered/Not Resolved]
  - Chromaturia [Not Recovered/Not Resolved]
  - Rash [Unknown]
  - Pruritus [Unknown]
  - Affect lability [Unknown]
  - Ulcer [Unknown]
  - Faeces discoloured [Unknown]
  - Irritability [Not Recovered/Not Resolved]
  - Dizziness [Not Recovered/Not Resolved]
  - Asthenia [Not Recovered/Not Resolved]
  - Chest pain [Unknown]
  - Tinnitus [Unknown]
  - Balance disorder [Unknown]
  - Activities of daily living impaired [Unknown]
  - Swollen tongue [Not Recovered/Not Resolved]
  - Burning sensation [Recovered/Resolved]
  - Pain [Recovered/Resolved]
  - Tongue disorder [Not Recovered/Not Resolved]
  - Tongue discolouration [Not Recovered/Not Resolved]
  - Glossitis [Not Recovered/Not Resolved]
